FAERS Safety Report 4344980-1 (Version None)
Quarter: 2004Q2

REPORT INFORMATION
  Report Type: 
  Country: None (occurrence: None)
  Receive Date: 20040420
  Receipt Date: 20040402
  Transmission Date: 20050107
  Serious: Yes (Other)
  Sender: FDA-Public Use
  Company Number: US012974

PATIENT
  Age: 5 Year
  Sex: Female

DRUGS (1)
  1. ACTIQ [Suspect]
     Dates: start: 20021223, end: 20021223

REACTIONS (1)
  - ACCIDENTAL EXPOSURE [None]
